FAERS Safety Report 12067782 (Version 1)
Quarter: 2016Q1

REPORT INFORMATION
  Report Type: Spontaneous
  Country: US (occurrence: None)
  Receive Date: 20160210
  Receipt Date: 20160210
  Transmission Date: 20160526
  Serious: No
  Sender: FDA-Public Use
  Company Number: None

PATIENT
  Age: 64 Year
  Sex: Male
  Weight: 86.4 kg

DRUGS (1)
  1. FENOFIBRATE. [Suspect]
     Active Substance: FENOFIBRATE
     Indication: HYPERLIPIDAEMIA
     Dosage: MG PO
     Route: 048
     Dates: start: 20151102, end: 20151106

REACTIONS (1)
  - Angioedema [None]

NARRATIVE: CASE EVENT DATE: 20151106
